FAERS Safety Report 6698916-9 (Version None)
Quarter: 2010Q2

REPORT INFORMATION
  Report Type: 
  Country: None (occurrence: None)
  Receive Date: 20100427
  Receipt Date: 20100420
  Transmission Date: 20101027
  Serious: Yes (Death)
  Sender: FDA-Public Use
  Company Number: A0789856A

PATIENT
  Sex: Male

DRUGS (1)
  1. AVANDIA [Suspect]
     Indication: DIABETES MELLITUS
     Route: 048
     Dates: start: 20020101, end: 20070501

REACTIONS (4)
  - CARDIOMEGALY [None]
  - DEATH [None]
  - HYPERTENSIVE HEART DISEASE [None]
  - MYOCARDIAL ISCHAEMIA [None]
